FAERS Safety Report 5851148-6 (Version None)
Quarter: 2008Q3

REPORT INFORMATION
  Report Type: 
  Country: None (occurrence: None)
  Receive Date: 20080820
  Receipt Date: 20080804
  Transmission Date: 20090109
  Serious: Yes (Hospitalization)
  Sender: FDA-Public Use
  Company Number: US-CELGENEUS-163-C5013-07091190

PATIENT
  Sex: Female
  Weight: 63.5 kg

DRUGS (13)
  1. REVLIMID [Suspect]
     Indication: B-CELL LYMPHOMA
     Route: 048
     Dates: start: 20070813, end: 20070921
  2. DEXAMETHASONE TAB [Suspect]
     Indication: B-CELL LYMPHOMA
     Route: 065
     Dates: start: 20070910, end: 20070917
  3. LEVAQUIN [Concomitant]
     Indication: STAPHYLOCOCCAL INFECTION
     Route: 051
     Dates: start: 20070921, end: 20070927
  4. ATENOLOL [Concomitant]
     Indication: HYPERTENSION
     Route: 048
     Dates: start: 19920101
  5. ASPIRIN [Concomitant]
     Indication: ARTHRITIS
     Route: 048
     Dates: start: 19980101
  6. SYNTHROID [Concomitant]
     Indication: HYPOTHYROIDISM
     Route: 048
     Dates: start: 19980101
  7. MULTI-VITAMINS [Concomitant]
     Indication: VITAMIN SUPPLEMENTATION
     Route: 048
  8. PROTONIX [Concomitant]
     Indication: REFLUX GASTRITIS
     Route: 048
  9. XANAX [Concomitant]
     Indication: ANXIETY
     Route: 048
  10. MS CONTIN [Concomitant]
     Indication: PAIN
     Route: 048
  11. REGLAN [Concomitant]
     Indication: FLATULENCE
     Route: 048
     Dates: start: 20070820
  12. REGLAN [Concomitant]
     Indication: DISCOMFORT
  13. ARANESP [Concomitant]
     Indication: ANAEMIA
     Route: 058
     Dates: start: 20070827

REACTIONS (3)
  - CONFUSIONAL STATE [None]
  - HYPONATRAEMIA [None]
  - STAPHYLOCOCCAL INFECTION [None]
